FAERS Safety Report 8537548-4 (Version None)
Quarter: 2012Q3

REPORT INFORMATION
  Report Type: 
  Country: None (occurrence: None)
  Receive Date: 20120725
  Receipt Date: 20120718
  Transmission Date: 20120928
  Serious: Yes (Hospitalization, Other)
  Sender: FDA-Public Use
  Company Number: US-US-EMD SERONO, INC.-7125994

PATIENT
  Sex: Male
  Weight: 136 kg

DRUGS (4)
  1. REBIF [Suspect]
     Indication: MULTIPLE SCLEROSIS
     Dates: start: 20110609
  2. SYNTHROID [Concomitant]
     Indication: HYPOTHYROIDISM
  3. DEPAKOTE [Concomitant]
     Indication: BIPOLAR DISORDER
  4. STEROIDS [Suspect]
     Indication: MULTIPLE SCLEROSIS RELAPSE

REACTIONS (6)
  - HEAT STROKE [None]
  - HYPOTENSION [None]
  - ATRIAL FIBRILLATION [None]
  - MULTIPLE SCLEROSIS RELAPSE [None]
  - PNEUMONIA [None]
  - PYREXIA [None]
